FAERS Safety Report 12571447 (Version 1)
Quarter: 2016Q3

REPORT INFORMATION
  Report Type: Report from Study
  Country: JP (occurrence: JP)
  Receive Date: 20160719
  Receipt Date: 20160719
  Transmission Date: 20161109
  Serious: No
  Sender: FDA-Public Use
  Company Number: JP-UCBSA-2016026647

PATIENT
  Age: 65 Year
  Sex: Female
  Weight: 40 kg

DRUGS (6)
  1. LEVETIRACETAM. [Suspect]
     Active Substance: LEVETIRACETAM
     Indication: SIMPLE PARTIAL SEIZURES
     Dosage: 500 MG, 2X/DAY (BID)
     Route: 041
     Dates: start: 20160405, end: 20160411
  2. CLONAZEPAM. [Concomitant]
     Active Substance: CLONAZEPAM
     Indication: SIMPLE PARTIAL SEIZURES
     Dosage: UNK
     Dates: end: 20160401
  3. FOSPHENYTOIN SODIUM. [Concomitant]
     Active Substance: FOSPHENYTOIN SODIUM
     Dosage: 300 MG, DAILY
     Route: 042
     Dates: start: 20160406, end: 20160407
  4. LEVETIRACETAM. [Suspect]
     Active Substance: LEVETIRACETAM
     Indication: ATONIC SEIZURES
  5. FOSPHENYTOIN SODIUM. [Concomitant]
     Active Substance: FOSPHENYTOIN SODIUM
     Indication: SIMPLE PARTIAL SEIZURES
     Dosage: 900 MG, DAILY
     Route: 042
     Dates: start: 20160405, end: 20160405
  6. PHENYTOIN. [Concomitant]
     Active Substance: PHENYTOIN
     Indication: SIMPLE PARTIAL SEIZURES
     Dosage: UNK
     Dates: end: 20160401

REACTIONS (4)
  - Haemoglobin decreased [Recovered/Resolved]
  - White blood cell count decreased [Recovered/Resolved]
  - Red blood cell count decreased [Recovered/Resolved]
  - Haematocrit decreased [Recovered/Resolved]

NARRATIVE: CASE EVENT DATE: 20160411
